FAERS Safety Report 20536142 (Version 1)
Quarter: 2022Q1

REPORT INFORMATION
  Report Type: Report from Study
  Country: NL (occurrence: NL)
  Receive Date: 20220302
  Receipt Date: 20220302
  Transmission Date: 20220423
  Serious: Yes (Hospitalization, Other)
  Sender: FDA-Public Use
  Company Number: NL-BRISTOL-MYERS SQUIBB COMPANY-BMS-2022-028365

PATIENT
  Age: 77 Year
  Sex: Male

DRUGS (4)
  1. NIVOLUMAB [Suspect]
     Active Substance: NIVOLUMAB
     Indication: Malignant melanoma
     Dosage: 240 ABSENT, 2X
     Route: 042
     Dates: start: 20211015, end: 20211104
  2. IPILIMUMAB [Suspect]
     Active Substance: IPILIMUMAB
     Indication: Malignant melanoma
     Dosage: 80 ABSENT, 2X
     Route: 042
     Dates: start: 20211015, end: 20211104
  3. MYCOPHENOLATE MOFETIL [Concomitant]
     Active Substance: MYCOPHENOLATE MOFETIL
     Indication: Product used for unknown indication
     Dosage: 1000 MILLIGRAM 2DD
     Route: 065
     Dates: start: 20220211
  4. TACROLIMUS [Concomitant]
     Active Substance: TACROLIMUS
     Indication: Product used for unknown indication
     Dosage: 6 MILLIGRAM 2DD
     Route: 065
     Dates: start: 20220120, end: 20220217

REACTIONS (2)
  - Malaise [Unknown]
  - Prerenal failure [Unknown]

NARRATIVE: CASE EVENT DATE: 20220217
